FAERS Safety Report 17588593 (Version 1)
Quarter: 2020Q1

REPORT INFORMATION
  Report Type: Spontaneous
  Country: CN (occurrence: CN)
  Receive Date: 20200326
  Receipt Date: 20200326
  Transmission Date: 20200409
  Serious: Yes (Other)
  Sender: FDA-Public Use
  Company Number: CN-BAXTER-2020BAX006325

PATIENT
  Age: 3 Year
  Sex: Male
  Weight: 17 kg

DRUGS (3)
  1. POTASSIUM CHLORIDE. [Suspect]
     Active Substance: POTASSIUM CHLORIDE
     Indication: FLUID REPLACEMENT
     Route: 041
     Dates: start: 20200228, end: 20200228
  2. 5% GLUCOSE  INJECTION [Suspect]
     Active Substance: DEXTROSE
     Indication: FLUID REPLACEMENT
     Route: 041
     Dates: start: 20200228, end: 20200228
  3. VITAMIN C [Suspect]
     Active Substance: ASCORBIC ACID
     Indication: FLUID REPLACEMENT
     Route: 041
     Dates: start: 20200228, end: 20200228

REACTIONS (2)
  - Rash erythematous [Recovered/Resolved]
  - Rash pruritic [Recovered/Resolved]

NARRATIVE: CASE EVENT DATE: 20200228
